FAERS Safety Report 10365239 (Version 1)
Quarter: 2014Q1

REPORT INFORMATION
  Report Type: Spontaneous
  Country: US (occurrence: None)
  Receive Date: 20140306
  Receipt Date: 20140306
  Transmission Date: 20141002
  Serious: Yes (Other)
  Sender: FDA-Public Use
  Company Number: 163-21880-13022263

PATIENT
  Age: 62 Year
  Sex: Female
  Weight: 92.53 kg

DRUGS (10)
  1. REVLIMID (LENALIDOMIDE)(25 MILLIGRAM, CAPSULES) [Suspect]
     Indication: PLASMA CELL MYELOMA
     Route: 048
     Dates: start: 20121212
  2. ACYCLOVIR(ACICLOVIR)(TABLETS) [Concomitant]
  3. ADULT LOW DOSE ASPIRIN(ACETYLSALICYLIC ACID)(UNKNOWN [Concomitant]
  4. ATENOLOL(ATENOLOL)(TABLETS) [Concomitant]
  5. CLARITIN(LORATADINE)(TABLETS)? [Concomitant]
  6. LANSOPRAZOLE(LANSOPRAZOLE)(UNKNOWN) [Concomitant]
  7. MULTIVITAMINS(MULTIVITAMINS)(CAPSULES) [Concomitant]
  8. ONDANSETRON HCL(ONDANSETRON HYDROCHLORIDE)(UNKNOWN) [Concomitant]
  9. POTASSIUM(POTASSIUM)(TABLETS) [Concomitant]
  10. PROCHLORPERAZINE MALEATE(PROCHLORPERAZINE MALEATE)(UNKNOWN) [Concomitant]

REACTIONS (1)
  - Thrombosis [None]
